FAERS Safety Report 4899162-1 (Version None)
Quarter: 2006Q1

REPORT INFORMATION
  Report Type: 
  Country: None (occurrence: None)
  Receive Date: 20060125
  Receipt Date: 20060112
  Transmission Date: 20060701
  Serious: Yes (Death)
  Sender: FDA-Public Use
  Company Number: 2006BH000643

PATIENT
  Age: 62 Year
  Sex: Female

DRUGS (1)
  1. IGIV GENERIC [Suspect]
     Dosage: IV
     Route: 042

REACTIONS (3)
  - ARTERIAL THROMBOSIS LIMB [None]
  - BLOOD VISCOSITY INCREASED [None]
  - PULMONARY EMBOLISM [None]
